FAERS Safety Report 6795673-2 (Version None)
Quarter: 2010Q2

REPORT INFORMATION
  Report Type: 
  Country: None (occurrence: None)
  Receive Date: 20100625
  Receipt Date: 20100615
  Transmission Date: 20101027
  Serious: Yes (Other)
  Sender: FDA-Public Use
  Company Number: US-ELI_LILLY_AND_COMPANY-US201006005541

PATIENT
  Age: 61 Year
  Sex: Female

DRUGS (1)
  1. CIALIS [Suspect]
     Dosage: 5 MG, UNKNOWN
     Dates: start: 20100609, end: 20100611

REACTIONS (1)
  - OPTIC ISCHAEMIC NEUROPATHY [None]
